FAERS Safety Report 4983695-3 (Version None)
Quarter: 2006Q2

REPORT INFORMATION
  Report Type: 
  Country: None (occurrence: None)
  Receive Date: 20060425
  Receipt Date: 20060425
  Transmission Date: 20061013
  Serious: Yes (Other)
  Sender: FDA-Public Use
  Company Number: None

PATIENT
  Age: 48 Year
  Sex: Female
  Weight: 104.3273 kg

DRUGS (3)
  1. PAROXETINE [Suspect]
     Indication: AGORAPHOBIA
     Dosage: 1 PILL AT BEDTIME PO
     Route: 048
  2. PAROXETINE [Suspect]
     Indication: OBSESSIVE-COMPULSIVE DISORDER
     Dosage: 1 PILL AT BEDTIME PO
     Route: 048
  3. PAROXETINE [Suspect]
     Indication: PANIC DISORDER
     Dosage: 1 PILL AT BEDTIME PO
     Route: 048

REACTIONS (4)
  - BLOOD PRESSURE INCREASED [None]
  - CHEST PAIN [None]
  - DRY MOUTH [None]
  - PRINZMETAL ANGINA [None]
